FAERS Safety Report 25906176 (Version 2)
Quarter: 2025Q4

REPORT INFORMATION
  Report Type: Spontaneous
  Country: JP (occurrence: JP)
  Receive Date: 20251010
  Receipt Date: 20251021
  Transmission Date: 20260118
  Serious: Yes (Other)
  Sender: SANDOZ
  Company Number: JP-002147023-NVSJ2025JP009846

PATIENT
  Age: 80 Year
  Sex: Male

DRUGS (2)
  1. AZOPT [Suspect]
     Active Substance: BRINZOLAMIDE
     Indication: Glaucoma
     Dosage: 1%
     Route: 047
  2. TAFLUPROST [Concomitant]
     Active Substance: TAFLUPROST
     Indication: Glaucoma
     Dosage: UNK
     Route: 047

REACTIONS (2)
  - Renal impairment [Unknown]
  - Contraindicated product prescribed [Unknown]
